FAERS Safety Report 16370990 (Version 1)
Quarter: 2019Q2

REPORT INFORMATION
  Report Type: Spontaneous
  Country: GB (occurrence: GB)
  Receive Date: 20190530
  Receipt Date: 20190530
  Transmission Date: 20190711
  Serious: Yes (Congenital Anomaly, Other)
  Sender: FDA-Public Use
  Company Number: GB-AUROBINDO-07-AUR-00914

PATIENT

DRUGS (1)
  1. CIPROFLOXACIN. [Suspect]
     Active Substance: CIPROFLOXACIN
     Indication: LOWER RESPIRATORY TRACT INFECTION
     Dosage: 250 MILLIGRAM, ONCE A DAY
     Route: 064
     Dates: start: 20070215, end: 20070219

REACTIONS (2)
  - Foetal exposure during pregnancy [Unknown]
  - Abnormal palmar/plantar creases [Unknown]
